FAERS Safety Report 21937833 (Version 1)
Quarter: 2023Q1

REPORT INFORMATION
  Report Type: Spontaneous
  Country: US (occurrence: None)
  Receive Date: 20230201
  Receipt Date: 20230201
  Transmission Date: 20230418
  Serious: No
  Sender: FDA-Public Use
  Company Number: None

PATIENT
  Sex: 0

DRUGS (1)
  1. PAXLOVID [Suspect]
     Active Substance: NIRMATRELVIR\RITONAVIR
     Indication: SARS-CoV-2 test positive
     Dosage: FREQUENCY : TWICE A DAY;?
     Route: 048
     Dates: start: 20230118, end: 20230119

REACTIONS (9)
  - Feeling abnormal [None]
  - Taste disorder [None]
  - Sinus disorder [None]
  - Oral disorder [None]
  - Pharyngeal disorder [None]
  - Insomnia [None]
  - Bowel movement irregularity [None]
  - Abdominal discomfort [None]
  - Therapy cessation [None]
